FAERS Safety Report 9977795 (Version 1)
Quarter: 2014Q1

REPORT INFORMATION
  Report Type: Report from Study
  Country: US (occurrence: US)
  Receive Date: 20140306
  Receipt Date: 20140306
  Transmission Date: 20141002
  Serious: No
  Sender: FDA-Public Use
  Company Number: US-ABBVIE-13P-163-1163279-00

PATIENT
  Sex: Male

DRUGS (1)
  1. HUMIRA [Suspect]
     Indication: PSORIATIC ARTHROPATHY
     Route: 058
     Dates: start: 20110720, end: 201306

REACTIONS (3)
  - Irritable bowel syndrome [Recovering/Resolving]
  - Rectal haemorrhage [Recovering/Resolving]
  - Clostridium difficile infection [Recovered/Resolved]
